FAERS Safety Report 7124421-1 (Version None)
Quarter: 2010Q4

REPORT INFORMATION
  Report Type: 
  Country: None (occurrence: None)
  Receive Date: 20101126
  Receipt Date: 20101111
  Transmission Date: 20110411
  Serious: Yes (Hospitalization)
  Sender: FDA-Public Use
  Company Number: GXKR2010CA12775

PATIENT
  Age: 38 Year
  Sex: Male

DRUGS (5)
  1. BUPROPION HCL [Suspect]
     Route: 045
  2. BUPROPION HCL [Suspect]
     Dosage: CRUSHED TABLETS 15 DF, ONCE/SINGLE
     Route: 045
  3. GLYBURIDE [Concomitant]
     Indication: DIABETES MELLITUS
  4. METFORMIN [Concomitant]
     Indication: DIABETES MELLITUS
  5. OLANZAPINE [Concomitant]
     Indication: DIABETES MELLITUS
     Route: 065

REACTIONS (3)
  - DRUG ABUSE [None]
  - DRUG ADMINISTRATION ERROR [None]
  - GRAND MAL CONVULSION [None]
